FAERS Safety Report 5900195-4 (Version None)
Quarter: 2008Q3

REPORT INFORMATION
  Report Type: 
  Country: None (occurrence: None)
  Receive Date: 20080926
  Receipt Date: 20080925
  Transmission Date: 20090109
  Serious: Yes (Death, Hospitalization)
  Sender: FDA-Public Use
  Company Number: SE-BRISTOL-MYERS SQUIBB COMPANY-14265821

PATIENT
  Age: 61 Year
  Sex: Female

DRUGS (9)
  1. ORENCIA [Suspect]
     Indication: RHEUMATOID ARTHRITIS
     Dates: start: 20071101, end: 20080301
  2. ORUDIS [Suspect]
  3. METOPROLOL TARTRATE [Concomitant]
  4. ZOLPIDEM TARTRATE [Concomitant]
  5. SALURES [Concomitant]
  6. PRIMOLUT-NOR [Concomitant]
  7. PLENDIL [Concomitant]
     Dosage: PROL RELEASE TABS
  8. ASPIRIN [Concomitant]
  9. DIVIGEL [Concomitant]

REACTIONS (11)
  - ARTHRALGIA [None]
  - BACTERIAL INFECTION [None]
  - FATIGUE [None]
  - FUNGAL INFECTION [None]
  - OROPHARYNGEAL BLISTERING [None]
  - OROPHARYNGEAL PAIN [None]
  - PANCREATITIS [None]
  - PYREXIA [None]
  - RENAL FAILURE [None]
  - RESPIRATORY FAILURE [None]
  - SHOCK [None]
